FAERS Safety Report 9916360 (Version 1)
Quarter: 2014Q1

REPORT INFORMATION
  Report Type: Other
  Country: GB (occurrence: GB)
  Receive Date: 20140221
  Receipt Date: 20140221
  Transmission Date: 20141002
  Serious: Yes (Life-Threatening, Hospitalization)
  Sender: FDA-Public Use
  Company Number: GB-TARO PHARMACEUTICALS U.S.A., INC-2014SUN00331

PATIENT
  Age: 74 Year
  Sex: Female
  Weight: 52.61 kg

DRUGS (8)
  1. WARFARIN [Suspect]
     Indication: ATRIAL FIBRILLATION
     Dosage: UNK
     Route: 048
     Dates: start: 200007
  2. WARFARIN [Suspect]
     Indication: ATRIAL FLUTTER
  3. AMILORIDE [Concomitant]
     Dosage: 5 MG, OD
  4. DIGOXIN [Concomitant]
     Dosage: 250 MCG
     Dates: start: 20080328
  5. DILTIAZEM [Concomitant]
     Dosage: 360 MG, OD
  6. FUROSEMIDE [Concomitant]
     Dosage: 40 MG, OD
  7. LISINOPRIL [Concomitant]
     Indication: HYPERTENSION
     Dosage: 10 MG, OD
  8. SIMVASTATIN [Concomitant]
     Indication: HYPERCHOLESTEROLAEMIA
     Dosage: 20 MG, OD
     Dates: start: 20110611

REACTIONS (4)
  - Hypotension [Unknown]
  - Melaena [Unknown]
  - Dizziness [Unknown]
  - Upper gastrointestinal haemorrhage [Recovered/Resolved]
